FAERS Safety Report 15754495 (Version 1)
Quarter: 2018Q4

REPORT INFORMATION
  Report Type: Spontaneous
  Country: US (occurrence: US)
  Receive Date: 20181224
  Receipt Date: 20181224
  Transmission Date: 20190205
  Serious: No
  Sender: FDA-Public Use
  Company Number: US-ELI_LILLY_AND_COMPANY-US201812008285

PATIENT
  Sex: Male

DRUGS (3)
  1. HUMALOG KWIKPEN [Suspect]
     Active Substance: INSULIN LISPRO
     Dosage: 15 U, PRN (SLIDING SCALE BEFORE EACH MEAL)
     Route: 058
  2. TOUJEO [Concomitant]
     Active Substance: INSULIN GLARGINE
     Indication: DIABETES MELLITUS
     Dosage: 30 U, EACH EVENING (NIGHT)
  3. HUMALOG KWIKPEN [Suspect]
     Active Substance: INSULIN LISPRO
     Indication: DIABETES MELLITUS
     Dosage: 15 U, PRN (SLIDING SCALE BEFORE EACH MEAL)
     Route: 058
     Dates: start: 2015

REACTIONS (2)
  - Blood glucose increased [Recovering/Resolving]
  - Incorrect dose administered [Recovering/Resolving]
